FAERS Safety Report 10179267 (Version 3)
Quarter: 2014Q2

REPORT INFORMATION
  Report Type: Report from Study
  Country: US (occurrence: US)
  Receive Date: 20140519
  Receipt Date: 20140603
  Transmission Date: 20141212
  Serious: Yes (Hospitalization)
  Sender: FDA-Public Use
  Company Number: US-NAPPMUNDI-USA-2013-0108364

PATIENT
  Age: 48 Year
  Sex: Female

DRUGS (3)
  1. OXY CR TAB [Suspect]
     Indication: BACK PAIN
     Dosage: 60 MG, BID
     Route: 048
  2. OXY CR TAB [Suspect]
     Indication: ARTHRITIS
  3. HYDROCODONE [Concomitant]
     Indication: BREAKTHROUGH PAIN
     Dosage: 10 MG, UNK

REACTIONS (6)
  - Chest pain [Unknown]
  - Bronchitis [Unknown]
  - Hypertension [Unknown]
  - Nausea [Unknown]
  - Irritability [Unknown]
  - Feeling cold [Unknown]
